FAERS Safety Report 10892261 (Version 1)
Quarter: 2015Q1

REPORT INFORMATION
  Report Type: Spontaneous
  Country: TW (occurrence: TW)
  Receive Date: 20150306
  Receipt Date: 20150306
  Transmission Date: 20150721
  Serious: Yes (Other)
  Sender: FDA-Public Use
  Company Number: TW-SA-2015SA026443

PATIENT
  Age: 18 Year
  Sex: Male

DRUGS (6)
  1. DOXORUBICIN [Suspect]
     Active Substance: DOXORUBICIN
     Indication: ACUTE MYELOID LEUKAEMIA
     Dosage: ON DAYS 1,3 AND 5
     Route: 042
     Dates: start: 20120825, end: 20120830
  2. METHYLPREDNISOLONE. [Concomitant]
     Active Substance: METHYLPREDNISOLONE
     Dosage: DAY 1 TO DAY 5; WAS GIVEN WITH  EACH CYTARABINE ADMINISTRATION
     Dates: start: 20120825, end: 20120830
  3. FLUDARA [Suspect]
     Active Substance: FLUDARABINE PHOSPHATE
     Indication: ACUTE MYELOID LEUKAEMIA
     Dosage: ON DAYS 1-5
     Route: 065
     Dates: start: 20120825, end: 20120825
  4. FLUDARA [Suspect]
     Active Substance: FLUDARABINE PHOSPHATE
     Indication: ACUTE MYELOID LEUKAEMIA
     Dosage: 20% REDUCTION OF DOSE
     Route: 065
     Dates: start: 201208, end: 20120830
  5. CYTARABINE. [Suspect]
     Active Substance: CYTARABINE
     Indication: ACUTE MYELOID LEUKAEMIA
     Dosage: ON DAYS 1-5
     Route: 065
     Dates: start: 20120825, end: 20120830
  6. G-CSF [Suspect]
     Active Substance: GRANULOCYTE COLONY-STIMULATING FACTOR NOS
     Indication: ACUTE MYELOID LEUKAEMIA
     Dosage: FROM DAY-2 TO DAY-5
     Route: 065
     Dates: start: 201208, end: 201208

REACTIONS (5)
  - Sinus tachycardia [Recovered/Resolved]
  - Cough [Recovered/Resolved]
  - Cardiac failure congestive [Recovered/Resolved]
  - Dyspnoea [Recovered/Resolved]
  - Chest discomfort [Recovered/Resolved]
